FAERS Safety Report 10594377 (Version 1)
Quarter: 2014Q4

REPORT INFORMATION
  Report Type: Spontaneous
  Country: DE (occurrence: DE)
  Receive Date: 20141119
  Receipt Date: 20141119
  Transmission Date: 20150529
  Serious: Yes (Other)
  Sender: FDA-Public Use
  Company Number: DE-ABBVIE-14P-062-1308587-00

PATIENT
  Age: 26 Year
  Sex: Female
  Weight: 47 kg

DRUGS (3)
  1. BUDESONIDE. [Concomitant]
     Active Substance: BUDESONIDE
     Indication: CROHN^S DISEASE
     Route: 048
     Dates: start: 20130718, end: 20140216
  2. GYNVITAL GRAVIDA [Concomitant]
     Active Substance: HERBALS
     Indication: PROPHYLAXIS OF NEURAL TUBE DEFECT
     Route: 048
     Dates: start: 20130812, end: 20140216
  3. HUMIRA [Suspect]
     Active Substance: ADALIMUMAB
     Indication: CROHN^S DISEASE
     Dosage: LAST EXPOSURE IN GW 3+4
     Route: 058
     Dates: start: 20130718, end: 20130812

REACTIONS (3)
  - Vaginal haemorrhage [Unknown]
  - Anal fistula [Unknown]
  - Premature labour [Unknown]

NARRATIVE: CASE EVENT DATE: 20140216
